FAERS Safety Report 7514161-9 (Version None)
Quarter: 2011Q2

REPORT INFORMATION
  Report Type: 
  Country: None (occurrence: None)
  Receive Date: 20110531
  Receipt Date: 20110519
  Transmission Date: 20111010
  Serious: Yes (Other)
  Sender: FDA-Public Use
  Company Number: ES-GENENTECH-318437

PATIENT
  Sex: Female

DRUGS (3)
  1. LEVOTHYROXINE SODIUM [Concomitant]
     Indication: PRODUCT USED FOR UNKNOWN INDICATION
     Dosage: 100 A?G, UNK
     Dates: start: 20070724
  2. SOMATROPIN RDNA [Suspect]
     Indication: NERVOUS SYSTEM DISORDER
     Dosage: 1.4 MG, UNK
     Route: 065
     Dates: start: 20070508, end: 20101119
  3. COLECALCIFEROL [Concomitant]
     Indication: PRODUCT USED FOR UNKNOWN INDICATION
     Dosage: 800 U, UNK
     Dates: start: 20091118

REACTIONS (1)
  - BONE SARCOMA [None]
